FAERS Safety Report 12158985 (Version 1)
Quarter: 2016Q1

REPORT INFORMATION
  Report Type: Spontaneous
  Country: US (occurrence: US)
  Receive Date: 20160308
  Receipt Date: 20160308
  Transmission Date: 20160526
  Serious: No
  Sender: FDA-Public Use
  Company Number: US-JNJFOC-20160222709

PATIENT
  Age: 91 Year
  Sex: Female
  Weight: 52.16 kg

DRUGS (1)
  1. TYLENOL REGULAR STRENGTH [Suspect]
     Active Substance: ACETAMINOPHEN
     Indication: HEADACHE
     Dosage: ONCE AT NIGHT
     Route: 048

REACTIONS (4)
  - Product package associated injury [Recovered/Resolved]
  - Incorrect dose administered [Recovered/Resolved]
  - Limb injury [Recovered/Resolved]
  - Product closure removal difficult [Unknown]
